FAERS Safety Report 13354592 (Version 1)
Quarter: 2017Q1

REPORT INFORMATION
  Report Type: Spontaneous
  Country: US (occurrence: US)
  Receive Date: 20170321
  Receipt Date: 20170321
  Transmission Date: 20170429
  Serious: No
  Sender: FDA-Public Use
  Company Number: US-GLAXOSMITHKLINE-US2017GSK039040

PATIENT
  Age: 60 Year
  Sex: Female

DRUGS (1)
  1. CAMBIA [Suspect]
     Active Substance: DICLOFENAC POTASSIUM
     Indication: HEADACHE
     Dosage: 50 MG, UNK (ONE PACKET WITH 1 TO 2 OUNCES OF WATER, DRINK IMMEDIATELY AS A SINGLE DOSE)
     Route: 048
     Dates: start: 20170103, end: 20170110

REACTIONS (3)
  - Abdominal pain upper [Not Recovered/Not Resolved]
  - Gastric disorder [Not Recovered/Not Resolved]
  - Product use issue [Unknown]

NARRATIVE: CASE EVENT DATE: 20170111
